FAERS Safety Report 8336940-0 (Version None)
Quarter: 2012Q2

REPORT INFORMATION
  Report Type: 
  Country: None (occurrence: None)
  Receive Date: 20120504
  Receipt Date: 20120208
  Transmission Date: 20120825
  Serious: No
  Sender: FDA-Public Use
  Company Number: US-GLAXOSMITHKLINE-A0965171A

PATIENT
  Age: 65 Year
  Sex: Female

DRUGS (3)
  1. IRON [Concomitant]
  2. TRAMADOL HCL [Concomitant]
  3. HORIZANT [Suspect]
     Indication: RESTLESS LEGS SYNDROME
     Dosage: 600 PER DAY
     Route: 048
     Dates: start: 20120207

REACTIONS (1)
  - SOMNOLENCE [None]
